FAERS Safety Report 7329768-1 (Version None)
Quarter: 2011Q1

REPORT INFORMATION
  Report Type: 
  Country: None (occurrence: None)
  Receive Date: 20110303
  Receipt Date: 20110222
  Transmission Date: 20110831
  Serious: Yes (Other)
  Sender: FDA-Public Use
  Company Number: US-CEPHALON-2011000828

PATIENT
  Sex: Female
  Weight: 73 kg

DRUGS (2)
  1. NUVIGIL [Suspect]
     Indication: NARCOLEPSY
     Route: 048
     Dates: start: 20100601, end: 20110201
  2. SYNTHROID [Concomitant]
     Dates: start: 20100101

REACTIONS (5)
  - FEELING ABNORMAL [None]
  - DRY MOUTH [None]
  - SEDATION [None]
  - SPEECH DISORDER [None]
  - OBSESSIVE-COMPULSIVE DISORDER [None]
